FAERS Safety Report 14420727 (Version 1)
Quarter: 2018Q1

REPORT INFORMATION
  Report Type: Spontaneous
  Country: US (occurrence: US)
  Receive Date: 20180122
  Receipt Date: 20180122
  Transmission Date: 20180509
  Serious: Yes (Other)
  Sender: FDA-Public Use
  Company Number: US-ROCHE-1966157

PATIENT
  Sex: Female

DRUGS (20)
  1. LEVETIRACETAM. [Concomitant]
     Active Substance: LEVETIRACETAM
  2. MODAFINIL. [Concomitant]
     Active Substance: MODAFINIL
  3. METFORMIN HCL [Concomitant]
     Active Substance: METFORMIN HYDROCHLORIDE
  4. MIRTAZAPINE. [Concomitant]
     Active Substance: MIRTAZAPINE
  5. GLYBURIDE. [Concomitant]
     Active Substance: GLYBURIDE
  6. AMITRIPTYLINE HCL [Concomitant]
     Active Substance: AMITRIPTYLINE
  7. OXYBUTYNIN CHLORIDE. [Concomitant]
     Active Substance: OXYBUTYNIN CHLORIDE
  8. PROPRANOLOL HCL [Concomitant]
     Active Substance: PROPRANOLOL HYDROCHLORIDE
  9. NYSTATIN. [Concomitant]
     Active Substance: NYSTATIN
  10. KETOCONAZOLE. [Concomitant]
     Active Substance: KETOCONAZOLE
  11. PIOGLITAZONE HCL [Concomitant]
     Active Substance: PIOGLITAZONE
  12. RITUXAN [Suspect]
     Active Substance: RITUXIMAB
     Indication: MULTIPLE SCLEROSIS
     Route: 042
     Dates: start: 20160310
  13. SELENIUM SULFIDE. [Concomitant]
     Active Substance: SELENIUM SULFIDE
  14. TRAMADOL HCL [Concomitant]
     Active Substance: TRAMADOL HYDROCHLORIDE
  15. OMEPRAZOLE. [Concomitant]
     Active Substance: OMEPRAZOLE
  16. OLANZAPINE. [Concomitant]
     Active Substance: OLANZAPINE
  17. GABAPENTIN. [Concomitant]
     Active Substance: GABAPENTIN
  18. ABILIFY [Concomitant]
     Active Substance: ARIPIPRAZOLE
  19. BACLOFEN. [Concomitant]
     Active Substance: BACLOFEN
  20. SERTRALINE HCL [Concomitant]
     Active Substance: SERTRALINE HYDROCHLORIDE

REACTIONS (1)
  - Cellulitis [Unknown]
